FAERS Safety Report 24863130 (Version 1)
Quarter: 2025Q1

REPORT INFORMATION
  Report Type: Spontaneous
  Country: US (occurrence: US)
  Receive Date: 20250120
  Receipt Date: 20250120
  Transmission Date: 20250409
  Serious: Yes (Other)
  Sender: SANOFI AVENTIS
  Company Number: US-SA-2025SA009984

PATIENT
  Age: 46 Year
  Sex: Female

DRUGS (4)
  1. AUBAGIO [Suspect]
     Active Substance: TERIFLUNOMIDE
     Indication: Multiple sclerosis
  2. LEVOCARNITINE [Concomitant]
     Active Substance: LEVOCARNITINE
  3. VITAMINS NOS [Concomitant]
     Active Substance: VITAMINS
  4. VITAMIN D NOS [Concomitant]
     Active Substance: CHOLECALCIFEROL\ERGOCALCIFEROL

REACTIONS (17)
  - Multiple sclerosis relapse [Unknown]
  - Blindness unilateral [Unknown]
  - Reading disorder [Unknown]
  - Paraesthesia [Unknown]
  - Gait disturbance [Unknown]
  - Pain in extremity [Unknown]
  - Balance disorder [Unknown]
  - Aphasia [Unknown]
  - Disturbance in attention [Unknown]
  - Skin mass [Unknown]
  - Erythema [Unknown]
  - Gingival swelling [Unknown]
  - Vulvovaginal swelling [Unknown]
  - Loss of personal independence in daily activities [Unknown]
  - Tremor [Unknown]
  - Acne [Unknown]
  - Alopecia [Unknown]

NARRATIVE: CASE EVENT DATE: 20240401
